FAERS Safety Report 5287951-3 (Version None)
Quarter: 2007Q2

REPORT INFORMATION
  Report Type: 
  Country: None (occurrence: None)
  Receive Date: 20070405
  Receipt Date: 20070404
  Transmission Date: 20071010
  Serious: Yes (Hospitalization)
  Sender: FDA-Public Use
  Company Number: AU-JNJFOC-20070305982

PATIENT
  Sex: Female

DRUGS (7)
  1. DURAGESIC-100 [Suspect]
     Route: 062
  2. DURAGESIC-100 [Suspect]
     Indication: PAIN
     Route: 062
  3. HALOPERIDOL [Concomitant]
     Indication: AGITATION
  4. OSTELIN [Concomitant]
  5. MOVICOL [Concomitant]
     Indication: CONSTIPATION
  6. DUPHALAC [Concomitant]
     Indication: CONSTIPATION
  7. PANADOL [Concomitant]
     Indication: PAIN
     Route: 065

REACTIONS (2)
  - DRUG ADMINISTRATION ERROR [None]
  - OVERDOSE [None]
